FAERS Safety Report 9329041 (Version 2)
Quarter: 2013Q3

REPORT INFORMATION
  Report Type: Spontaneous
  Country: IT (occurrence: IT)
  Receive Date: 20130604
  Receipt Date: 20130712
  Transmission Date: 20140515
  Serious: Yes (Hospitalization)
  Sender: FDA-Public Use
  Company Number: IT-BAYER-2013-068690

PATIENT
  Age: 63 Year
  Sex: Female

DRUGS (4)
  1. CARDIOASPIRIN [Suspect]
     Indication: STENT PLACEMENT
     Dosage: 100 MG, QD
     Route: 048
     Dates: start: 20130210, end: 20130528
  2. CARDIOASPIRIN [Suspect]
     Indication: STENT PLACEMENT
     Dosage: UNK
     Dates: start: 20130530
  3. PLAVIX [Suspect]
     Indication: STENT PLACEMENT
     Dosage: DAILY DOSE 75 MG
     Route: 048
     Dates: start: 20130210, end: 20130528
  4. INSULIN [Concomitant]

REACTIONS (2)
  - Subdural haematoma [Not Recovered/Not Resolved]
  - Headache [Not Recovered/Not Resolved]
